FAERS Safety Report 22018578 (Version 1)
Quarter: 2023Q1

REPORT INFORMATION
  Report Type: Spontaneous
  Country: US (occurrence: US)
  Receive Date: 20230222
  Receipt Date: 20230222
  Transmission Date: 20230417
  Serious: No
  Sender: FDA-Public Use
  Company Number: US-LUPIN PHARMACEUTICALS INC.-2023-01242

PATIENT

DRUGS (1)
  1. XOPENEX HFA [Suspect]
     Active Substance: LEVALBUTEROL TARTRATE
     Indication: Dyspnoea
     Dosage: UNK

REACTIONS (3)
  - Dyspnoea [Unknown]
  - Device delivery system issue [Unknown]
  - Incorrect dose administered by device [Unknown]
